FAERS Safety Report 8267167-9 (Version None)
Quarter: 2012Q2

REPORT INFORMATION
  Report Type: 
  Country: None (occurrence: None)
  Receive Date: 20120404
  Receipt Date: 20120309
  Transmission Date: 20120825
  Serious: Yes (Other)
  Sender: FDA-Public Use
  Company Number: AUR-APL-2012-01403

PATIENT
  Age: 49 Year
  Sex: Male

DRUGS (5)
  1. ZOLOFT [Suspect]
     Indication: PRODUCT USED FOR UNKNOWN INDICATION
     Dosage: 50 MG (50 MG,1 IN 1 D),ORAL ; 100 MG (100 MG,1 IN 1 D),ORAL
     Route: 048
     Dates: start: 20120106
  2. ZOLOFT [Suspect]
     Indication: PRODUCT USED FOR UNKNOWN INDICATION
     Dosage: 50 MG (50 MG,1 IN 1 D),ORAL ; 100 MG (100 MG,1 IN 1 D),ORAL
     Route: 048
     Dates: start: 20111229, end: 20120105
  3. VENLAFAXINE HCL [Suspect]
     Indication: PRODUCT USED FOR UNKNOWN INDICATION
     Dosage: 75 MG (75 MG,1 IN 1 D),ORAL
     Route: 048
     Dates: start: 20111229, end: 20120104
  4. MIRTAZAPINE [Suspect]
     Indication: PRODUCT USED FOR UNKNOWN INDICATION
     Dosage: 15 MG (15 MG,1 IN 1 D),ORAL ; 7.5 MG (7.5 MG,1 IN 1 D),ORAL
     Route: 048
     Dates: start: 20120103, end: 20120104
  5. MIRTAZAPINE [Suspect]
     Indication: PRODUCT USED FOR UNKNOWN INDICATION
     Dosage: 15 MG (15 MG,1 IN 1 D),ORAL ; 7.5 MG (7.5 MG,1 IN 1 D),ORAL
     Route: 048
     Dates: start: 20120105

REACTIONS (1)
  - EPISTAXIS [None]
